FAERS Safety Report 8619643-4 (Version None)
Quarter: 2012Q3

REPORT INFORMATION
  Report Type: 
  Country: None (occurrence: None)
  Receive Date: 20120824
  Receipt Date: 20120816
  Transmission Date: 20120928
  Serious: Yes (Hospitalization)
  Sender: FDA-Public Use
  Company Number: CH-JNJFOC-20120807976

PATIENT
  Age: 84 Year
  Sex: Female

DRUGS (10)
  1. CALCIUM CARBONATE [Concomitant]
     Route: 065
  2. HALOPERIDOL LACTATE [Suspect]
     Route: 065
     Dates: start: 20120419
  3. HALOPERIDOL LACTATE [Suspect]
     Route: 065
     Dates: start: 20120419
  4. HALOPERIDOL LACTATE [Suspect]
     Route: 065
     Dates: start: 20120321
  5. CARVEDILOL [Concomitant]
     Route: 065
  6. HALOPERIDOL LACTATE [Suspect]
     Route: 065
     Dates: end: 20120516
  7. HALOPERIDOL LACTATE [Suspect]
     Indication: DEMENTIA
     Route: 065
     Dates: end: 20120516
  8. CANDESARTAN CILEXETIL [Concomitant]
     Route: 065
  9. CHOLECALCIFEROL [Concomitant]
     Route: 065
  10. HALOPERIDOL LACTATE [Suspect]
     Indication: PSYCHOTIC BEHAVIOUR
     Route: 065
     Dates: start: 20120321

REACTIONS (5)
  - HYPONATRAEMIA [None]
  - BLOOD GLUCOSE INCREASED [None]
  - TONIC CONVULSION [None]
  - EXTRAPYRAMIDAL DISORDER [None]
  - BLOOD CREATINE PHOSPHOKINASE INCREASED [None]
